FAERS Safety Report 18121830 (Version 2)
Quarter: 2020Q3

REPORT INFORMATION
  Report Type: Spontaneous
  Country: CL (occurrence: CL)
  Receive Date: 20200807
  Receipt Date: 20200820
  Transmission Date: 20201103
  Serious: No
  Sender: FDA-Public Use
  Company Number: CL-AMGEN-CHLSP2020127859

PATIENT
  Age: 59 Year
  Sex: Female

DRUGS (2)
  1. GLAFORNIL [Concomitant]
     Indication: GLUCOSE TOLERANCE IMPAIRED
     Dosage: 500 MG, 1X/DAY
  2. ENBREL [Suspect]
     Active Substance: ETANERCEPT
     Indication: RHEUMATOID ARTHRITIS
     Dosage: 50 MG, WEEKLY
     Route: 065
     Dates: start: 2018

REACTIONS (4)
  - Hyperhidrosis [Not Recovered/Not Resolved]
  - Gastrointestinal disorder [Not Recovered/Not Resolved]
  - Dry throat [Not Recovered/Not Resolved]
  - Dyspepsia [Not Recovered/Not Resolved]

NARRATIVE: CASE EVENT DATE: 202007
